FAERS Safety Report 24313319 (Version 1)
Quarter: 2024Q3

REPORT INFORMATION
  Report Type: Spontaneous
  Country: GB (occurrence: GB)
  Receive Date: 20240912
  Receipt Date: 20240912
  Transmission Date: 20241016
  Serious: Yes (Other)
  Sender: TAKEDA
  Company Number: None

PATIENT
  Age: 57 Year
  Sex: Female
  Weight: 60 kg

DRUGS (2)
  1. LISDEXAMFETAMINE DIMESYLATE [Suspect]
     Active Substance: LISDEXAMFETAMINE DIMESYLATE
     Indication: Product used for unknown indication
     Dosage: UNK
     Route: 065
     Dates: start: 20230102
  2. TIBOLONE [Concomitant]
     Active Substance: TIBOLONE
     Indication: Hormone replacement therapy
     Dosage: UNK
     Route: 065

REACTIONS (5)
  - Weight increased [Not Recovered/Not Resolved]
  - Dizziness [Not Recovered/Not Resolved]
  - Fatigue [Not Recovered/Not Resolved]
  - Time perception altered [Not Recovered/Not Resolved]
  - Indifference [Not Recovered/Not Resolved]

NARRATIVE: CASE EVENT DATE: 20230701
